FAERS Safety Report 9354639 (Version 2)
Quarter: 2013Q3

REPORT INFORMATION
  Report Type: Report from Study
  Country: US (occurrence: US)
  Receive Date: 20130618
  Receipt Date: 20130708
  Transmission Date: 20140515
  Serious: Yes (Other)
  Sender: FDA-Public Use
  Company Number: US-ELI_LILLY_AND_COMPANY-US201306002911

PATIENT
  Sex: Female

DRUGS (1)
  1. TERIPARATIDE [Suspect]

REACTIONS (3)
  - Thyroid mass [Unknown]
  - Hypoaesthesia [Unknown]
  - Paraesthesia [Unknown]
